FAERS Safety Report 9255467 (Version 1)
Quarter: 2013Q2

REPORT INFORMATION
  Report Type: Spontaneous
  Country: FR (occurrence: FR)
  Receive Date: 20130425
  Receipt Date: 20130425
  Transmission Date: 20140414
  Serious: Yes (Other)
  Sender: FDA-Public Use
  Company Number: FR-JNJFOC-20130409726

PATIENT
  Age: 59 Year
  Sex: Female

DRUGS (2)
  1. REMICADE [Suspect]
     Indication: ANKYLOSING SPONDYLITIS
     Dosage: DOSE 100 MG (TOTAL DAILY DOSE NOT REPORTED)
     Route: 042
     Dates: start: 20110524, end: 201210
  2. METHOTREXATE [Concomitant]
     Route: 065
     Dates: start: 201108, end: 201207

REACTIONS (4)
  - Choroiditis [Recovered/Resolved]
  - Myalgia [Unknown]
  - Pain [Unknown]
  - Infusion related reaction [Unknown]
